FAERS Safety Report 7226609-8 (Version None)
Quarter: 2011Q1

REPORT INFORMATION
  Report Type: 
  Country: None (occurrence: None)
  Receive Date: 20110105
  Receipt Date: 20101229
  Transmission Date: 20110831
  Serious: Yes (Hospitalization, Other)
  Sender: FDA-Public Use
  Company Number: CRC-10-212

PATIENT
  Age: 55 Year
  Sex: Male
  Weight: 68.8 kg

DRUGS (14)
  1. ACETAMINOPHEN [Concomitant]
  2. LEVETIRACETAM [Concomitant]
  3. TEGRETOL [Concomitant]
  4. E2007 (PERAMPANEL) [Suspect]
     Indication: PARTIAL SEIZURES
     Dosage: SEE IMAGE; ORAL
     Route: 048
     Dates: start: 20100301, end: 20100512
  5. E2007 (PERAMPANEL) [Suspect]
     Indication: PARTIAL SEIZURES
     Dosage: SEE IMAGE; ORAL
     Route: 048
     Dates: start: 20100920, end: 20101026
  6. E2007 (PERAMPANEL) [Suspect]
     Indication: PARTIAL SEIZURES
     Dosage: SEE IMAGE; ORAL
     Route: 048
     Dates: start: 20101027, end: 20101031
  7. E2007 (PERAMPANEL) [Suspect]
     Indication: PARTIAL SEIZURES
     Dosage: SEE IMAGE; ORAL
     Route: 048
     Dates: start: 20100517, end: 20100620
  8. E2007 (PERAMPANEL) [Suspect]
     Indication: PARTIAL SEIZURES
     Dosage: SEE IMAGE; ORAL
     Route: 048
     Dates: start: 20100621, end: 20100919
  9. ANALGESIC BALM (ANALGESICS) [Concomitant]
  10. VALPROATE SODIUM [Concomitant]
  11. ZOCOR [Concomitant]
  12. PHENYTOIN [Suspect]
     Indication: EPILEPSY
     Dosage: SEE IMAGE: ORAL
     Route: 048
     Dates: start: 20101103
  13. PHENYTOIN [Suspect]
     Indication: EPILEPSY
     Dosage: SEE IMAGE: ORAL
     Route: 048
     Dates: start: 20100503, end: 20101031
  14. PHENYTOIN [Suspect]
     Indication: EPILEPSY
     Dosage: SEE IMAGE: ORAL
     Route: 048
     Dates: start: 20101101, end: 20101102

REACTIONS (13)
  - TOXICITY TO VARIOUS AGENTS [None]
  - COMPLEX PARTIAL SEIZURES [None]
  - SPINAL OSTEOARTHRITIS [None]
  - SOMNOLENCE [None]
  - HEAD INJURY [None]
  - VERTIGO [None]
  - ATAXIA [None]
  - LOSS OF CONSCIOUSNESS [None]
  - SIMPLE PARTIAL SEIZURES [None]
  - HEADACHE [None]
  - NAUSEA [None]
  - NYSTAGMUS [None]
  - DIZZINESS [None]
